FAERS Safety Report 7213640-1 (Version None)
Quarter: 2010Q4

REPORT INFORMATION
  Report Type: 
  Country: None (occurrence: None)
  Receive Date: 20101126
  Receipt Date: 20091203
  Transmission Date: 20110411
  Serious: Yes (Other)
  Sender: FDA-Public Use
  Company Number: WAES 0912USA00846

PATIENT
  Age: 56 Year
  Sex: Male
  Weight: 83.4619 kg

DRUGS (4)
  1. FOSAMAX [Suspect]
     Indication: OSTEOPOROSIS
     Dosage: 10 MG/DAILY/PO
     Route: 048
     Dates: start: 19960408, end: 20010606
  2. FOSAMAX [Suspect]
     Indication: OSTEOPOROSIS
     Dosage: 70 MG/WKY/PO
     Route: 048
     Dates: start: 20010606, end: 20060401
  3. CALCIUM (UNSPECIFIED) [Concomitant]
  4. VITAMIN D (UNSPECIFIED) [Concomitant]

REACTIONS (33)
  - ANXIETY [None]
  - BENIGN PROSTATIC HYPERPLASIA [None]
  - BRUXISM [None]
  - COLITIS [None]
  - COMPRESSION FRACTURE [None]
  - DEPRESSION [None]
  - DIARRHOEA [None]
  - DRUG ADMINISTRATION ERROR [None]
  - DYSPNOEA EXERTIONAL [None]
  - EXOSTOSIS [None]
  - FATIGUE [None]
  - FISTULA [None]
  - GALLBLADDER DISORDER [None]
  - GENITAL PAIN [None]
  - HAEMORRHOIDS [None]
  - HEADACHE [None]
  - HEPATITIS [None]
  - HYPERSENSITIVITY [None]
  - LIPOMA [None]
  - MUSCLE SPASMS [None]
  - MUSCULOSKELETAL CHEST PAIN [None]
  - OBESITY [None]
  - ONYCHOMYCOSIS [None]
  - ORAL TORUS [None]
  - OSTEONECROSIS [None]
  - PROSTATISM [None]
  - SLEEP APNOEA SYNDROME [None]
  - SPONDYLOLISTHESIS [None]
  - SPONDYLOLYSIS [None]
  - TENOSYNOVITIS [None]
  - TOOTH ABSCESS [None]
  - TOOTH FRACTURE [None]
  - TOOTH INFECTION [None]
